FAERS Safety Report 11628757 (Version 1)
Quarter: 2015Q4

REPORT INFORMATION
  Report Type: Spontaneous
  Country: US (occurrence: US)
  Receive Date: 20151014
  Receipt Date: 20151014
  Transmission Date: 20160304
  Serious: No
  Sender: FDA-Public Use
  Company Number: US-BAYER-2015-442465

PATIENT
  Age: 87 Year
  Sex: Female
  Weight: 84.35 kg

DRUGS (11)
  1. ZEGERID OTC CAPSULES [Suspect]
     Active Substance: OMEPRAZOLE\SODIUM BICARBONATE
     Indication: GASTROOESOPHAGEAL REFLUX DISEASE
     Dosage: 1 DF, QD
     Route: 048
     Dates: start: 20151008
  2. CITRACAL [Concomitant]
     Active Substance: CALCIUM CITRATE
  3. ZEGERID OTC CAPSULES [Suspect]
     Active Substance: OMEPRAZOLE\SODIUM BICARBONATE
     Indication: DYSPEPSIA
  4. ZINC [Concomitant]
     Active Substance: ZINC\ZINC CHLORIDE
  5. LOVAZA [Concomitant]
     Active Substance: OMEGA-3-ACID ETHYL ESTERS
  6. DIOVAN [Concomitant]
     Active Substance: VALSARTAN
  7. CENTRUM [Concomitant]
     Active Substance: VITAMINS
     Dosage: UNK
  8. DIAZEPAM. [Concomitant]
     Active Substance: DIAZEPAM
  9. VITAMIN D [Concomitant]
     Active Substance: CHOLECALCIFEROL
  10. FOLIC ACID. [Concomitant]
     Active Substance: FOLIC ACID
  11. BENADRYL [Concomitant]
     Active Substance: DIPHENHYDRAMINE HYDROCHLORIDE

REACTIONS (2)
  - Product use issue [None]
  - Product use issue [None]

NARRATIVE: CASE EVENT DATE: 20151008
